FAERS Safety Report 14174657 (Version 1)
Quarter: 2017Q4

REPORT INFORMATION
  Report Type: Spontaneous
  Country: US (occurrence: US)
  Receive Date: 20171109
  Receipt Date: 20171109
  Transmission Date: 20180321
  Serious: No
  Sender: FDA-Public Use
  Company Number: US-ALLERGAN-1672814US

PATIENT
  Sex: Female

DRUGS (3)
  1. DORZOLAMIDE [Concomitant]
     Active Substance: DORZOLAMIDE
     Indication: GLAUCOMA
     Dosage: UNK UNK, QHS
     Route: 047
  2. ALPHAGAN P [Suspect]
     Active Substance: BRIMONIDINE TARTRATE
     Indication: GLAUCOMA
     Dosage: UNK UNK, BID
     Route: 047
     Dates: start: 2014
  3. LUMIGAN [Concomitant]
     Active Substance: BIMATOPROST
     Indication: GLAUCOMA
     Dosage: 2 GTT, BID
     Route: 047
     Dates: start: 2014

REACTIONS (5)
  - Tongue ulceration [Not Recovered/Not Resolved]
  - Inappropriate schedule of drug administration [Unknown]
  - Dysgeusia [Not Recovered/Not Resolved]
  - Tongue blistering [Not Recovered/Not Resolved]
  - Tongue exfoliation [Not Recovered/Not Resolved]
